FAERS Safety Report 25044387 (Version 3)
Quarter: 2025Q3

REPORT INFORMATION
  Report Type: Report from Study
  Country: JP (occurrence: JP)
  Receive Date: 20250306
  Receipt Date: 20250813
  Transmission Date: 20251021
  Serious: Yes (Death)
  Sender: TAKEDA
  Company Number: JP-TAKEDA-2025TJP002444

PATIENT
  Age: 67 Year
  Sex: Male
  Weight: 47.3 kg

DRUGS (28)
  1. MARIBAVIR [Suspect]
     Active Substance: MARIBAVIR
     Indication: Cytomegalovirus infection
     Dosage: 400 MILLIGRAM, BID
     Dates: start: 20241220, end: 20250204
  2. GANCICLOVIR [Concomitant]
     Active Substance: GANCICLOVIR
     Indication: Cytomegalovirus infection
     Dates: start: 20250205, end: 20250209
  3. TACROLIMUS [Concomitant]
     Active Substance: TACROLIMUS
  4. RABEPRAZOLE SODIUM [Concomitant]
     Active Substance: RABEPRAZOLE SODIUM
  5. ROXITHROMYCIN [Concomitant]
     Active Substance: ROXITHROMYCIN
  6. FEBUXOSTAT [Concomitant]
     Active Substance: FEBUXOSTAT
  7. ZOLPIDEM TARTRATE [Concomitant]
     Active Substance: ZOLPIDEM TARTRATE
  8. CEFTRIAXONE [Concomitant]
     Active Substance: CEFTRIAXONE
  9. VANCOMYCIN HYDROCHLORIDE [Concomitant]
     Active Substance: VANCOMYCIN HYDROCHLORIDE
  10. CEFAZOLIN SODIUM [Concomitant]
     Active Substance: CEFAZOLIN SODIUM
  11. AMBISOME [Concomitant]
     Active Substance: AMPHOTERICIN B
  12. CALCIUM GLUCONATE\DEXTROSE\MAGNESIUM SULFATE\POTASSIUM ACETATE\POTASSI [Concomitant]
     Active Substance: CALCIUM GLUCONATE\DEXTROSE\MAGNESIUM SULFATE\POTASSIUM ACETATE\POTASSIUM PHOSPHATE, DIBASIC\ZINC SUL
  13. AMINO ACIDS, SOURCE UNSPECIFIED [Concomitant]
     Active Substance: AMINO ACIDS, SOURCE UNSPECIFIED
  14. CYANOCOBALAMIN\PYRIDOXAMINE HYDROCHLORIDE\THIAMINE HYDROCHLORIDE [Concomitant]
     Active Substance: CYANOCOBALAMIN\PYRIDOXAMINE HYDROCHLORIDE\THIAMINE HYDROCHLORIDE
  15. KCL [Concomitant]
     Active Substance: POTASSIUM CHLORIDE
  16. FILGRASTIM [Concomitant]
     Active Substance: FILGRASTIM
  17. HUMULIN R [Concomitant]
     Active Substance: INSULIN HUMAN
  18. FUROSEMIDE [Concomitant]
     Active Substance: FUROSEMIDE
  19. MAGNESIUM SULFATE [Concomitant]
     Active Substance: MAGNESIUM SULFATE
  20. SOYBEAN OIL [Concomitant]
     Active Substance: SOYBEAN OIL
  21. Eleject [Concomitant]
  22. ALBUMIN HUMAN [Concomitant]
     Active Substance: ALBUMIN HUMAN
  23. TOLVAPTAN [Concomitant]
     Active Substance: TOLVAPTAN
  24. PIPERACILLIN SODIUM\TAZOBACTAM SODIUM [Concomitant]
     Active Substance: PIPERACILLIN SODIUM\TAZOBACTAM SODIUM
  25. KENKETU GLOVENIN-I [Concomitant]
     Active Substance: HUMAN IMMUNOGLOBULIN G
  26. PIPERACILLIN NA [Concomitant]
  27. CILASTATIN SODIUM\IMIPENEM [Concomitant]
     Active Substance: CILASTATIN SODIUM\IMIPENEM
  28. TEICOPLANIN [Concomitant]
     Active Substance: TEICOPLANIN

REACTIONS (2)
  - Renal disorder [Fatal]
  - Acidosis [Fatal]

NARRATIVE: CASE EVENT DATE: 20250212
